FAERS Safety Report 11302687 (Version 4)
Quarter: 2015Q3

REPORT INFORMATION
  Report Type: Spontaneous
  Country: MX (occurrence: MX)
  Receive Date: 20150723
  Receipt Date: 20150828
  Transmission Date: 20151125
  Serious: Yes (Hospitalization, Other)
  Sender: FDA-Public Use
  Company Number: MX-ROCHE-1607860

PATIENT
  Sex: Female

DRUGS (4)
  1. METHOTREXATE [Concomitant]
     Active Substance: METHOTREXATE
     Indication: RHEUMATOID ARTHRITIS
     Route: 030
  2. ROACTEMRA [Suspect]
     Active Substance: TOCILIZUMAB
     Indication: RHEUMATOID ARTHRITIS
     Dosage: TWO PIECES OF TOCILIZUMAB: 200MG/10ML, ONE PIECE OF TOCILIZUMAB: 80MG/4ML (460 MG DILUTED IN 100 ML)
     Route: 042
     Dates: start: 20150707, end: 20150707
  3. IBUPROFENO [Concomitant]
     Active Substance: IBUPROFEN
     Indication: RHEUMATOID ARTHRITIS
     Route: 065
  4. FOLIC ACID. [Concomitant]
     Active Substance: FOLIC ACID
     Indication: RHEUMATOID ARTHRITIS
     Route: 065

REACTIONS (13)
  - Chills [Unknown]
  - Suspected transmission of an infectious agent via product [Unknown]
  - Myalgia [Unknown]
  - Headache [Unknown]
  - Diarrhoea [Unknown]
  - Nausea [Unknown]
  - Inflammation [Unknown]
  - Medication error [Unknown]
  - Back pain [Unknown]
  - Hypersensitivity [Unknown]
  - Pyrexia [Unknown]
  - Sepsis [Unknown]
  - Bacterial infection [Unknown]

NARRATIVE: CASE EVENT DATE: 20150707
